FAERS Safety Report 26110049 (Version 1)
Quarter: 2025Q4

REPORT INFORMATION
  Report Type: Spontaneous
  Country: GB (occurrence: GB)
  Receive Date: 20251201
  Receipt Date: 20251201
  Transmission Date: 20260118
  Serious: Yes (Other)
  Sender: TEVA
  Company Number: None

PATIENT
  Age: 23 Year

DRUGS (17)
  1. MONTELUKAST [Suspect]
     Active Substance: MONTELUKAST
     Indication: Product used for unknown indication
     Dosage: AT NIGHT
     Route: 065
     Dates: start: 20250326
  2. SERTRALINE [Concomitant]
     Active Substance: SERTRALINE HYDROCHLORIDE
     Indication: Product used for unknown indication
     Dosage: NOT TAKING AND HASN^T BEEN FOR OVER A YEAR -GP AWARE
  3. BECLOMETHASONE DIPROPIONATE\FORMOTEROL FUMARATE\GLYCOPYRROLATE [Concomitant]
     Active Substance: BECLOMETHASONE DIPROPIONATE\FORMOTEROL FUMARATE\GLYCOPYRROLATE
     Indication: Product used for unknown indication
     Dosage: FORM STRENGTH: 172 / 5 / 9 MICROGRAMS / DOSE INHALER TWO PUFFS TO BE INHALED TWICE A DAY; ROUTE O...
     Dates: start: 20250930
  4. Hux-D3 [Concomitant]
     Indication: Product used for unknown indication
     Dosage: ON THE SAME DAY EACH MONTH
     Dates: start: 20250414
  5. FERROUS FUMARATE [Concomitant]
     Active Substance: FERROUS FUMARATE
     Indication: Product used for unknown indication
     Dosage: MORNING
  6. LAMOTRIGINE [Concomitant]
     Active Substance: LAMOTRIGINE
     Indication: Product used for unknown indication
  7. LAMOTRIGINE [Concomitant]
     Active Substance: LAMOTRIGINE
     Indication: Product used for unknown indication
     Dosage: AT NIGHT
  8. FOLIC ACID [Concomitant]
     Active Substance: FOLIC ACID
     Indication: Product used for unknown indication
     Dosage: MORNING
  9. LORAZEPAM [Concomitant]
     Active Substance: LORAZEPAM
     Indication: Muscle spasms
     Dosage: TIME INTERVAL: AS NECESSARY: MAX QDS PRN
  10. DOCUSATE [Concomitant]
     Active Substance: DOCUSATE
     Indication: Product used for unknown indication
  11. FEXOFENADINE [Concomitant]
     Active Substance: FEXOFENADINE HYDROCHLORIDE
     Indication: Product used for unknown indication
  12. ALBUTEROL [Concomitant]
     Active Substance: ALBUTEROL
     Indication: Product used for unknown indication
     Dosage: TIME INTERVAL: AS NECESSARY: FORM STRENGTH: 100 MICROGRAMS / DOSE INHALER CFC FREE TWO PUFFS AS R...
     Dates: start: 20250929
  13. FLUTICASONE FUROATE [Concomitant]
     Active Substance: FLUTICASONE FUROATE
     Indication: Product used for unknown indication
     Dosage: FORM STRENGTH: 27.5 MICROGRAMS / DOSE ONE SPRAY TO BE USED IN EACH NOSTRIL ONCE A DAY, OR AS DIRE...
     Route: 045
     Dates: start: 20250227
  14. NICOTINE [Concomitant]
     Active Substance: NICOTINE
     Indication: Product used for unknown indication
     Dosage: FORM STRENGTH: 21 MG / 24 HOURS APPLY ONE PATCH EACH DAY AS DIRECTED
     Route: 062
  15. NICOTINE [Concomitant]
     Active Substance: NICOTINE
     Indication: Product used for unknown indication
     Dosage: FORM STRENGTH: 1 MG / DOSE MOUTH SPRAY FRESH MINT TO BE USED AS DIRECTED
     Route: 048
     Dates: start: 20250820
  16. QUETIAPINE [Concomitant]
     Active Substance: QUETIAPINE
     Indication: Product used for unknown indication
     Dosage: NOT TAKING HAS BEEN FOR OVER A YEAR- GP AWARE
  17. CLOBAZAM [Concomitant]
     Active Substance: CLOBAZAM
     Indication: Product used for unknown indication
     Dosage: TIME INTERVAL: 0.33333333 DAYS
     Dates: start: 20240531

REACTIONS (1)
  - Bipolar disorder [Unknown]
